FAERS Safety Report 17837734 (Version 13)
Quarter: 2025Q2

REPORT INFORMATION
  Report Type: Report from Study
  Country: US (occurrence: US)
  Receive Date: 20200528
  Receipt Date: 20250523
  Transmission Date: 20250717
  Serious: Yes (Other)
  Sender: TAKEDA
  Company Number: US-SHIRE-US202017631

PATIENT
  Age: 54 Year
  Sex: Female
  Weight: 61.678 kg

DRUGS (25)
  1. HUMAN IMMUNOGLOBULIN G [Suspect]
     Active Substance: HUMAN IMMUNOGLOBULIN G
     Indication: Immunodeficiency common variable
     Dosage: 30 GRAM, Q4WEEKS
     Dates: start: 20191118
  2. HUMAN IMMUNOGLOBULIN G [Suspect]
     Active Substance: HUMAN IMMUNOGLOBULIN G
     Dosage: 35 GRAM, Q4WEEKS
  3. HUMAN IMMUNOGLOBULIN G [Suspect]
     Active Substance: HUMAN IMMUNOGLOBULIN G
     Dosage: 35 GRAM, Q4WEEKS
     Dates: start: 20191120
  4. HUMAN IMMUNOGLOBULIN G [Suspect]
     Active Substance: HUMAN IMMUNOGLOBULIN G
     Dosage: 30 GRAM, Q4WEEKS
  5. DOXYCYCLINE [Suspect]
     Active Substance: DOXYCYCLINE
     Indication: Product used for unknown indication
  6. DIPHENHYDRAMINE [Concomitant]
     Active Substance: DIPHENHYDRAMINE
  7. VITAMIN D3 [Concomitant]
     Active Substance: CHOLECALCIFEROL
  8. SODIUM CHLORIDE [Concomitant]
     Active Substance: SODIUM CHLORIDE
  9. PREDNISONE [Concomitant]
     Active Substance: PREDNISONE
  10. EPINEPHRINE [Concomitant]
     Active Substance: EPINEPHRINE
  11. FLUTICASONE [Concomitant]
     Active Substance: FLUTICASONE
  12. ACETAMINOPHEN [Concomitant]
     Active Substance: ACETAMINOPHEN
  13. AZELASTINE [Concomitant]
     Active Substance: AZELASTINE
  14. ENTYVIO [Concomitant]
     Active Substance: VEDOLIZUMAB
  15. CALCIUM [Concomitant]
     Active Substance: CALCIUM
  16. XYZAL [Concomitant]
     Active Substance: LEVOCETIRIZINE DIHYDROCHLORIDE
  17. PENTASA [Concomitant]
     Active Substance: MESALAMINE
  18. LYSINE [Concomitant]
     Active Substance: LYSINE
  19. FLONASE [Concomitant]
     Active Substance: FLUTICASONE PROPIONATE
  20. APRISO [Concomitant]
     Active Substance: MESALAMINE
  21. AZELASTINE HYDROCHLORIDE [Concomitant]
     Active Substance: AZELASTINE HYDROCHLORIDE
  22. FLUTICASONE PROPIONATE [Concomitant]
     Active Substance: FLUTICASONE PROPIONATE
  23. STELARA [Concomitant]
     Active Substance: USTEKINUMAB
  24. DIPHENHYDRAMINE HYDROCHLORIDE [Concomitant]
     Active Substance: DIPHENHYDRAMINE HYDROCHLORIDE
  25. AMITRIPTYLINE HYDROCHLORIDE [Concomitant]
     Active Substance: AMITRIPTYLINE HYDROCHLORIDE

REACTIONS (22)
  - Colitis microscopic [Unknown]
  - Nasopharyngitis [Not Recovered/Not Resolved]
  - Infusion related reaction [Unknown]
  - Immunoglobulins abnormal [Unknown]
  - COVID-19 [Unknown]
  - Throat irritation [Recovered/Resolved]
  - Multiple allergies [Unknown]
  - Bronchitis [Unknown]
  - Pharyngitis streptococcal [Unknown]
  - Oesophagitis [Unknown]
  - Product dose omission issue [Unknown]
  - Viral infection [Unknown]
  - Gastrointestinal infection [Unknown]
  - Sinusitis [Unknown]
  - Asthma [Unknown]
  - Insomnia [Unknown]
  - Hypersensitivity [Unknown]
  - Tachycardia [Unknown]
  - Arthralgia [Unknown]
  - Back pain [Unknown]
  - Headache [Unknown]
  - Fatigue [Unknown]

NARRATIVE: CASE EVENT DATE: 20241201
